FAERS Safety Report 16128140 (Version 10)
Quarter: 2022Q2

REPORT INFORMATION
  Report Type: Report from Study
  Country: US (occurrence: US)
  Receive Date: 20190328
  Receipt Date: 20220503
  Transmission Date: 20220721
  Serious: Yes (Other)
  Sender: FDA-Public Use
  Company Number: PHHY2018US201264

PATIENT
  Age: 18 Year
  Sex: Female

DRUGS (2)
  1. KYMRIAH [Suspect]
     Active Substance: TISAGENLECLEUCEL
     Indication: Acute lymphocytic leukaemia
     Dosage: UNK UNK, ONCE/SINGLE
     Route: 042
     Dates: start: 20180208
  2. IZ IVIG [Concomitant]
     Indication: Product used for unknown indication
     Dosage: UNK
     Route: 041

REACTIONS (15)
  - Metastases to central nervous system [Unknown]
  - Malignant neoplasm progression [Unknown]
  - B-cell aplasia [Unknown]
  - Iron overload [Unknown]
  - Anosmia [Unknown]
  - Feeling abnormal [Unknown]
  - Respiratory disorder [Unknown]
  - Lacrimation increased [Unknown]
  - Oestrogen deficiency [Unknown]
  - Nasal septum disorder [Unknown]
  - Memory impairment [Unknown]
  - Cough [Unknown]
  - Headache [Recovered/Resolved]
  - Gastroenteritis viral [Recovering/Resolving]
  - Illness [Recovering/Resolving]

NARRATIVE: CASE EVENT DATE: 20180208
